FAERS Safety Report 23637915 (Version 1)
Quarter: 2024Q1

REPORT INFORMATION
  Report Type: Report from Study
  Country: US (occurrence: US)
  Receive Date: 20240315
  Receipt Date: 20240315
  Transmission Date: 20240410
  Serious: Yes (Death)
  Sender: FDA-Public Use
  Company Number: US-DSJP-DSU-2023-153635

PATIENT
  Sex: Female
  Weight: 56.49 kg

DRUGS (2)
  1. ENHERTU [Suspect]
     Active Substance: FAM-TRASTUZUMAB DERUXTECAN-NXKI
     Indication: Product used for unknown indication
     Dosage: 305.1 MG, ONCE EVERY 3 WK (OVER 90 MINUTES)
     Route: 042
     Dates: start: 20231212
  2. ENHERTU [Suspect]
     Active Substance: FAM-TRASTUZUMAB DERUXTECAN-NXKI
     Dosage: 256 MG, ONCE EVERY 3 WK (OVER 30 MINUTES)
     Route: 042
     Dates: start: 20240305

REACTIONS (3)
  - Death [Fatal]
  - Weight decreased [Unknown]
  - Weight decreased [Unknown]

NARRATIVE: CASE EVENT DATE: 20230101
